FAERS Safety Report 6979894-1 (Version None)
Quarter: 2010Q3

REPORT INFORMATION
  Report Type: 
  Country: None (occurrence: None)
  Receive Date: 20100909
  Receipt Date: 20100830
  Transmission Date: 20110219
  Serious: Yes (Other)
  Sender: FDA-Public Use
  Company Number: 2009JP000641

PATIENT
  Age: 26 Year
  Sex: Female

DRUGS (24)
  1. TACROLIMUS [Suspect]
     Indication: LUPUS NEPHRITIS
     Dosage: 3 MG, ORAL
     Route: 048
     Dates: start: 20070528
  2. PREDNISOLONE [Suspect]
     Indication: LUPUS NEPHRITIS
     Dosage: 10 MG, ORAL; 9 MG, ORAL; 8 MG, ORAL; 45 MG, ORAL
     Route: 048
     Dates: end: 20080324
  3. PREDNISOLONE [Suspect]
     Indication: LUPUS NEPHRITIS
     Dosage: 10 MG, ORAL; 9 MG, ORAL; 8 MG, ORAL; 45 MG, ORAL
     Route: 048
     Dates: start: 20080324, end: 20080428
  4. PREDNISOLONE [Suspect]
     Indication: LUPUS NEPHRITIS
     Dosage: 10 MG, ORAL; 9 MG, ORAL; 8 MG, ORAL; 45 MG, ORAL
     Route: 048
     Dates: start: 20080428, end: 20100510
  5. PREDNISOLONE [Suspect]
     Indication: LUPUS NEPHRITIS
     Dosage: 10 MG, ORAL; 9 MG, ORAL; 8 MG, ORAL; 45 MG, ORAL
     Route: 048
     Dates: start: 20100511
  6. CELLCEPT [Concomitant]
  7. MICARDIS [Concomitant]
  8. GASTER (FAMOTIDINE) ORODISPERSIBLE CR TABLET [Concomitant]
  9. BUFFERIN (ACETYLSALICYLIC ACID, ALUMINIUM GLYCINATE) PER ORAL NOS [Concomitant]
  10. ACECOL (TEMOCAPRIL HYDROCHLORIDE) PER ORAL NOS [Concomitant]
  11. WARFARIN SODIUM [Concomitant]
  12. MAGLAX (MAGNESIUM OXIDE) PER ORAL NOS [Concomitant]
  13. MEVALOTIN (PRAVASTATIN SODIUM) PER ORAL NOS [Concomitant]
  14. FERROMIA (FERROUS SODIUM CITRATE) PER ORAL NOS [Concomitant]
  15. PROCYLIN (BERAPROST SODIUM) PER ORAL NOS [Concomitant]
  16. ITRIZOLE (ITRACONAZOLE) SOLUTION (ORAL USE) [Concomitant]
  17. BAKTAR (SULFAMETHOXAZOLE, TRIMETHOPRIM) TABLET [Concomitant]
  18. DEPAS (ETIZOLAM) PER ORAL NOS [Concomitant]
  19. HALCION [Concomitant]
  20. HUSCODE (CHLORPHENAMINE MALEATE, DIHYDROCODEINE PHOSPHATE, METHYLEPHED [Concomitant]
  21. FLOMOX (CEFCAPENE PIVOXIL HYDROCHLORIDE) PER ORAL NOS [Concomitant]
  22. HUSTAZOL (CLOPERASTINE HYDROCHLORIDE) PER ORAL NOS [Concomitant]
  23. LOXONIN (LOXOPROFEN SODIUM) PER ORAL NOS [Concomitant]
  24. MUCODYNE (CARBOCISTEINE) PER ORAL NOS [Concomitant]

REACTIONS (11)
  - BRONCHITIS [None]
  - CONJUNCTIVITIS ALLERGIC [None]
  - GASTROENTERITIS [None]
  - GINGIVITIS [None]
  - INFECTION [None]
  - INFLUENZA [None]
  - INSOMNIA [None]
  - IRON DEFICIENCY ANAEMIA [None]
  - MANIA [None]
  - NASOPHARYNGITIS [None]
  - PULMONARY HYPERTENSION [None]
